FAERS Safety Report 21069534 (Version 4)
Quarter: 2023Q2

REPORT INFORMATION
  Report Type: Spontaneous
  Country: AU (occurrence: None)
  Receive Date: 20220712
  Receipt Date: 20230522
  Transmission Date: 20230722
  Serious: Yes (Other)
  Sender: FDA-Public Use
  Company Number: AU-ROCHE-3134666

PATIENT
  Sex: Male

DRUGS (8)
  1. RITUXIMAB [Suspect]
     Active Substance: RITUXIMAB
     Indication: Diffuse large B-cell lymphoma
     Route: 041
     Dates: start: 20210901, end: 20220201
  2. BENDAMUSTINE [Suspect]
     Active Substance: BENDAMUSTINE
     Indication: Diffuse large B-cell lymphoma
     Route: 042
     Dates: start: 20210901, end: 20220201
  3. PEMBROLIZUMAB [Suspect]
     Active Substance: PEMBROLIZUMAB
     Indication: Diffuse large B-cell lymphoma
     Route: 042
     Dates: start: 202107, end: 202206
  4. DOXORUBICIN [Concomitant]
     Active Substance: DOXORUBICIN
  5. BLEOMYCIN [Concomitant]
     Active Substance: BLEOMYCIN SULFATE
  6. VINBLASTINE [Concomitant]
     Active Substance: VINBLASTINE
  7. DACARBAZINE [Concomitant]
     Active Substance: DACARBAZINE
  8. BRENTUXIMAB [Concomitant]
     Active Substance: BRENTUXIMAB

REACTIONS (6)
  - Disease progression [Unknown]
  - Drug ineffective [Unknown]
  - Tumour obstruction [Recovered/Resolved]
  - Pneumonia [Recovered/Resolved]
  - Anaemia [Unknown]
  - Lymphopenia [Unknown]
